FAERS Safety Report 21490891 (Version 1)
Quarter: 2022Q4

REPORT INFORMATION
  Report Type: Spontaneous
  Country: MA (occurrence: MA)
  Receive Date: 20221021
  Receipt Date: 20221021
  Transmission Date: 20230112
  Serious: Yes (Hospitalization)
  Sender: FDA-Public Use
  Company Number: MA-ORGANON-O2210MAR001080

PATIENT
  Sex: Female

DRUGS (1)
  1. FOSAVANCE [Suspect]
     Active Substance: ALENDRONATE SODIUM\CHOLECALCIFEROL
     Dosage: 1 TABLET PER WEEK
     Route: 048

REACTIONS (2)
  - Dizziness [Recovered/Resolved]
  - Tinnitus [Recovered/Resolved]
